FAERS Safety Report 23227910 (Version 1)
Quarter: 2023Q4

REPORT INFORMATION
  Report Type: Report from Study
  Country: BR (occurrence: BR)
  Receive Date: 20231125
  Receipt Date: 20231125
  Transmission Date: 20240109
  Serious: Yes (Death, Life-Threatening, Hospitalization, Other)
  Sender: FDA-Public Use
  Company Number: BR-TEVA-2023-BR-2949232

PATIENT
  Sex: Female

DRUGS (2)
  1. CARBOPLATIN [Suspect]
     Active Substance: CARBOPLATIN
     Indication: Non-small cell lung cancer
     Dosage: AUC 5, Q3W (ON DAY 1 OF EACH 21-DAY CYCLE; FOR FOUR CYCLES)
     Route: 042
     Dates: start: 20220822, end: 20220822
  2. PEMETREXED [Suspect]
     Active Substance: PEMETREXED
     Indication: Non-small cell lung cancer
     Dosage: 3.4014 MG/M2 DAILY; 500 MILLIGRAM/SQ. METER, Q3W (ON DAY 1 OF EACH 21-DAY CYCLE)
     Route: 042
     Dates: start: 20220822, end: 20220822

REACTIONS (3)
  - Sepsis [Fatal]
  - Dyspnoea [Not Recovered/Not Resolved]
  - Febrile neutropenia [Recovered/Resolved with Sequelae]

NARRATIVE: CASE EVENT DATE: 20220901
